FAERS Safety Report 20487218 (Version 1)
Quarter: 2022Q1

REPORT INFORMATION
  Report Type: Spontaneous
  Country: US (occurrence: US)
  Receive Date: 20220217
  Receipt Date: 20220217
  Transmission Date: 20220423
  Serious: Yes (Hospitalization)
  Sender: FDA-Public Use
  Company Number: US-BIOGEN-2022BI01096475

PATIENT
  Sex: Female

DRUGS (2)
  1. TECFIDERA [Suspect]
     Active Substance: DIMETHYL FUMARATE
     Indication: Multiple sclerosis
     Route: 065
  2. TECFIDERA [Suspect]
     Active Substance: DIMETHYL FUMARATE
     Route: 065
     Dates: start: 20150417

REACTIONS (5)
  - Fall [Recovered/Resolved]
  - Femur fracture [Unknown]
  - Fatigue [Unknown]
  - Aphasia [Unknown]
  - Malaise [Unknown]

NARRATIVE: CASE EVENT DATE: 20220101
